FAERS Safety Report 23790681 (Version 2)
Quarter: 2024Q3

REPORT INFORMATION
  Report Type: Spontaneous
  Country: SE (occurrence: SE)
  Receive Date: 20240427
  Receipt Date: 20240915
  Transmission Date: 20241017
  Serious: Yes (Hospitalization)
  Sender: ROCHE
  Company Number: None

PATIENT
  Age: 82 Year
  Sex: Female

DRUGS (7)
  1. OBINUTUZUMAB [Suspect]
     Active Substance: OBINUTUZUMAB
     Indication: Chronic lymphocytic leukaemia
     Dosage: COURSE 1, DAY 1
     Route: 042
     Dates: start: 20240320
  2. ACETAMINOPHEN [Concomitant]
     Active Substance: ACETAMINOPHEN
     Dosage: 2 TABLE FOR GAZYVARO TREATMENT
     Route: 048
  3. SODIUM CHLORIDE [Concomitant]
     Active Substance: SODIUM CHLORIDE
     Route: 065
     Dates: start: 20240320
  4. CETIRIZIN ABECE [Concomitant]
     Route: 048
  5. LEVOTHYROXINE SODIUM [Concomitant]
     Active Substance: LEVOTHYROXINE SODIUM
  6. PREDNISOLONE [Concomitant]
     Active Substance: PREDNISOLONE
     Route: 048
  7. LEUKERAN [Concomitant]
     Active Substance: CHLORAMBUCIL

REACTIONS (10)
  - Vomiting [Unknown]
  - Haemoglobin decreased [Unknown]
  - Feeling hot [Unknown]
  - Blood pressure decreased [Unknown]
  - Diarrhoea [Unknown]
  - Flushing [Unknown]
  - Acute myocardial infarction [Unknown]
  - Ventricular tachycardia [Unknown]
  - Nausea [Unknown]
  - Loss of consciousness [Unknown]

NARRATIVE: CASE EVENT DATE: 20240320
